FAERS Safety Report 5838864-7 (Version None)
Quarter: 2008Q3

REPORT INFORMATION
  Report Type: 
  Country: None (occurrence: None)
  Receive Date: 20080804
  Receipt Date: 20071206
  Transmission Date: 20090109
  Serious: Yes (Other)
  Sender: FDA-Public Use
  Company Number: DSU-2007-00968

PATIENT
  Age: 67 Year
  Sex: Male
  Weight: 90.7194 kg

DRUGS (6)
  1. BENICAR HCT [Suspect]
     Indication: HYPERTENSION
     Dosage: 20/25 MG (QD), PER ORAL
     Route: 048
     Dates: start: 20050519, end: 20071002
  2. DOXAZOSIN (DOXAZOSIN) (4 MILLIGRAM, TABLET) (DOXAZOSIN) [Concomitant]
  3. TRICOR (FENOFIBRATE) (145 MILLIGRAM, TABLET) (FENOFIBRATE) [Concomitant]
  4. ALEVE (NAPROXEN SODIUM) (275 MILLIGRAM, TABLET) (NAPROXEN SODIUM) [Concomitant]
  5. ASACOL ((MESALAZINE) (400 MILLIGRAM, TABLET) (MESALAZINE) [Concomitant]
  6. SIMVASTATIN [Concomitant]

REACTIONS (3)
  - LUPUS-LIKE SYNDROME [None]
  - RASH [None]
  - SYSTEMIC LUPUS ERYTHEMATOSUS [None]
